FAERS Safety Report 8329920-2 (Version None)
Quarter: 2012Q2

REPORT INFORMATION
  Report Type: 
  Country: None (occurrence: None)
  Receive Date: 20120502
  Receipt Date: 20091116
  Transmission Date: 20120825
  Serious: No
  Sender: FDA-Public Use
  Company Number: US-TEVA-2009025981

PATIENT
  Sex: Female
  Weight: 56.75 kg

DRUGS (12)
  1. URSO FORTE [Concomitant]
     Indication: CHOLELITHIASIS
     Dosage: 1000 MILLIGRAM;
     Dates: start: 20040101
  2. NUVIGIL [Suspect]
     Indication: SLEEP APNOEA SYNDROME
     Dosage: 150 MILLIGRAM;
     Route: 048
     Dates: start: 20091114
  3. VITAMIN D [Concomitant]
     Indication: PARATHYROID DISORDER
     Dosage: 10000 IU (INTERNATIONAL UNIT);
     Dates: start: 20090801
  4. NEXIUM [Concomitant]
     Indication: GASTROOESOPHAGEAL REFLUX DISEASE
     Dosage: 40 MILLIGRAM;
  5. MAGNESIUM OXIDE [Concomitant]
     Indication: MITRAL VALVE PROLAPSE
     Dosage: 300 MILLIGRAM;
  6. MIACALCIN [Concomitant]
     Indication: OSTEOPOROSIS
  7. COZAAR [Concomitant]
     Indication: HYPERTENSION
     Dosage: 50 MILLIGRAM;
  8. SYNTHROID [Concomitant]
     Indication: HYPOTHYROIDISM
     Dosage: 112 MICROGRAM;
     Route: 048
  9. ZOCOR [Concomitant]
     Indication: BLOOD CHOLESTEROL INCREASED
     Dosage: 20 MILLIGRAM;
  10. TIMOLOL MALEATE [Concomitant]
     Indication: GLAUCOMA
     Dates: start: 19950101
  11. ALPHAGAN [Concomitant]
     Indication: GLAUCOMA
     Dates: start: 19950101
  12. RESTASIS [Concomitant]
     Indication: DRY EYE

REACTIONS (2)
  - INSOMNIA [None]
  - DRUG INEFFECTIVE [None]
